FAERS Safety Report 17462345 (Version 1)
Quarter: 2020Q1

REPORT INFORMATION
  Report Type: Spontaneous
  Country: AT (occurrence: AT)
  Receive Date: 20200226
  Receipt Date: 20200226
  Transmission Date: 20200409
  Serious: Yes (Hospitalization, Other)
  Sender: FDA-Public Use
  Company Number: AT-PFIZER INC-2020085114

PATIENT
  Sex: Male
  Weight: 85 kg

DRUGS (10)
  1. PANTOLOC [Suspect]
     Active Substance: PANTOPRAZOLE SODIUM
     Dosage: UNK
  2. HYDAL [Suspect]
     Active Substance: HYDROMORPHONE HYDROCHLORIDE
     Dosage: UNK
  3. OPDIVO [Suspect]
     Active Substance: NIVOLUMAB
     Indication: RENAL CELL CARCINOMA
     Dosage: UNK
     Dates: start: 201905, end: 201909
  4. DIAMICRON [Suspect]
     Active Substance: GLICLAZIDE
     Dosage: UNK
  5. MAXI-KALZ [CALCIUM CITRATE] [Suspect]
     Active Substance: CALCIUM CITRATE
     Dosage: UNK
  6. YERVOY [Suspect]
     Active Substance: IPILIMUMAB
     Indication: RENAL CELL CARCINOMA
     Dosage: UNK
     Dates: start: 201905, end: 201909
  7. AMLODIPINE BESILATE [Suspect]
     Active Substance: AMLODIPINE BESYLATE
     Dosage: UNK
  8. FRAXIPARIN [Suspect]
     Active Substance: NADROPARIN CALCIUM
     Dosage: UNK
  9. CONCOR [Suspect]
     Active Substance: BISOPROLOL FUMARATE
     Dosage: UNK
  10. DENOSUMAB [Suspect]
     Active Substance: DENOSUMAB
     Dosage: UNK

REACTIONS (2)
  - Nephritis [Recovered/Resolved]
  - Pneumonitis [Recovered/Resolved]

NARRATIVE: CASE EVENT DATE: 20190731
